FAERS Safety Report 9300063 (Version 1)
Quarter: 2013Q2

REPORT INFORMATION
  Report Type: Spontaneous
  Country: US (occurrence: US)
  Receive Date: 20130521
  Receipt Date: 20130521
  Transmission Date: 20140414
  Serious: No
  Sender: FDA-Public Use
  Company Number: US-009507513-1305USA011095

PATIENT
  Sex: Female

DRUGS (4)
  1. JANUMET [Suspect]
  2. METFORMIN [Concomitant]
  3. GLIMEPIRIDE [Concomitant]
     Dosage: UNK
  4. AVANDAMET [Concomitant]

REACTIONS (2)
  - Drug ineffective [Unknown]
  - Constipation [Unknown]
